FAERS Safety Report 20539419 (Version 3)
Quarter: 2025Q4

REPORT INFORMATION
  Report Type: Spontaneous
  Country: EU (occurrence: EU)
  Receive Date: 20220302
  Receipt Date: 20251105
  Transmission Date: 20260118
  Serious: Yes (Life-Threatening, Hospitalization, Other)
  Sender: JOHNSON AND JOHNSON
  Company Number: None

PATIENT
  Age: 2 Day
  Sex: Male
  Weight: 3.48 kg

DRUGS (3)
  1. STELARA [Suspect]
     Active Substance: USTEKINUMAB
     Indication: Crohn^s disease
     Dosage: STRENGTH: 90 MGDOSE: NEXT DOSE PLANNED 07JUL2021.
     Route: 064
     Dates: start: 20210526, end: 20210623
  2. STELARA [Suspect]
     Active Substance: USTEKINUMAB
  3. IMUREL [Concomitant]
     Indication: Crohn^s disease
     Route: 064
     Dates: start: 20170616, end: 20210623

REACTIONS (6)
  - Respiration abnormal [Recovered/Resolved]
  - Pneumonia [Recovered/Resolved]
  - Sepsis neonatal [Recovered/Resolved]
  - Foetal exposure during pregnancy [Recovered/Resolved]
  - Atelectasis [Recovered/Resolved]
  - Asthma [Recovered/Resolved]

NARRATIVE: CASE EVENT DATE: 20210526
